FAERS Safety Report 4827033-5 (Version None)
Quarter: 2005Q4

REPORT INFORMATION
  Report Type: 
  Country: None (occurrence: None)
  Receive Date: 20051014
  Receipt Date: 20050729
  Transmission Date: 20060501
  Serious: No
  Sender: FDA-Public Use
  Company Number: 2005SP000654

PATIENT
  Age: 71 Year
  Sex: Female
  Weight: 60.3284 kg

DRUGS (3)
  1. LUNESTA [Suspect]
     Indication: INSOMNIA
     Dosage: 2MG; HS; ORAL
     Route: 048
     Dates: start: 20050502, end: 20050504
  2. AMBIEN [Concomitant]
  3. TEMAZEPAM [Concomitant]

REACTIONS (2)
  - DRUG INEFFECTIVE [None]
  - INSOMNIA [None]
